FAERS Safety Report 5863608-2 (Version None)
Quarter: 2008Q3

REPORT INFORMATION
  Report Type: 
  Country: None (occurrence: None)
  Receive Date: 20080828
  Receipt Date: 20080816
  Transmission Date: 20090109
  Serious: Yes (Hospitalization, Other)
  Sender: FDA-Public Use
  Company Number: US-PFIZER INC-2006155430

PATIENT
  Sex: Male
  Weight: 66.2 kg

DRUGS (2)
  1. LYRICA [Suspect]
     Indication: BACK PAIN
     Route: 048
  2. LYRICA [Suspect]
     Indication: NERVE BLOCK

REACTIONS (2)
  - PLATELET COUNT DECREASED [None]
  - VENTRICULAR EXTRASYSTOLES [None]
